FAERS Safety Report 6138496-X (Version None)
Quarter: 2009Q1

REPORT INFORMATION
  Report Type: 
  Country: None (occurrence: None)
  Receive Date: 20090331
  Receipt Date: 20090323
  Transmission Date: 20090719
  Serious: Yes (Hospitalization)
  Sender: FDA-Public Use
  Company Number: JP-MERCK-0804USA03927

PATIENT
  Age: 67 Year
  Sex: Female

DRUGS (1)
  1. ZETIA [Suspect]
     Indication: HYPERCHOLESTEROLAEMIA
     Route: 048
     Dates: start: 20070628, end: 20071116

REACTIONS (4)
  - CHOLELITHIASIS [None]
  - GASTROENTERITIS [None]
  - LIVER DISORDER [None]
  - PYELONEPHRITIS [None]
